FAERS Safety Report 6126311-X (Version None)
Quarter: 2009Q1

REPORT INFORMATION
  Report Type: 
  Country: None (occurrence: None)
  Receive Date: 20090320
  Receipt Date: 20090311
  Transmission Date: 20090719
  Serious: Yes (Death, Hospitalization)
  Sender: FDA-Public Use
  Company Number: JP-MERCK-0903USA00503

PATIENT
  Age: 80 Year
  Sex: Female
  Weight: 38 kg

DRUGS (5)
  1. HYZAAR [Suspect]
     Route: 048
     Dates: start: 20071219, end: 20090213
  2. WARFARIN [Suspect]
     Route: 048
     Dates: end: 20090303
  3. SELOKEN [Suspect]
     Route: 048
     Dates: end: 20090303
  4. SINGULAIR [Suspect]
     Route: 048
     Dates: end: 20090303
  5. OMEPRAL [Suspect]
     Route: 048
     Dates: end: 20090303

REACTIONS (1)
  - INTERSTITIAL LUNG DISEASE [None]
